FAERS Safety Report 20138394 (Version 5)
Quarter: 2022Q1

REPORT INFORMATION
  Report Type: Spontaneous
  Country: CA (occurrence: CA)
  Receive Date: 20211202
  Receipt Date: 20220121
  Transmission Date: 20220423
  Serious: Yes (Other)
  Sender: FDA-Public Use
  Company Number: CA-CELLTRION INC.-2021CA016269

PATIENT

DRUGS (5)
  1. INFLECTRA [Suspect]
     Active Substance: INFLIXIMAB-DYYB
     Indication: Colitis ulcerative
     Dosage: 10 MG/KG, INDUCTION AT Q 0 , 2, 6 WEEKS THEN EVERY 8 WEEKS
     Route: 042
     Dates: start: 2021
  2. INFLECTRA [Suspect]
     Active Substance: INFLIXIMAB-DYYB
     Dosage: 10 MG/KG, INDUCTION AT Q 0 , 2, 6 WEEKS THEN EVERY 8 WEEKS
     Route: 042
     Dates: start: 20211112
  3. INFLECTRA [Suspect]
     Active Substance: INFLIXIMAB-DYYB
     Dosage: 10 MG/KG, 2 DOSES RECEIVED
     Route: 042
     Dates: start: 2021, end: 20211112
  4. PROPOFOL [Concomitant]
     Active Substance: PROPOFOL
     Indication: Sedation
     Dosage: UNK
  5. XELJANZ [Concomitant]
     Active Substance: TOFACITINIB CITRATE
     Indication: Colitis ulcerative
     Dosage: 10 MG, 2X/DAY
     Route: 048
     Dates: start: 20211121

REACTIONS (7)
  - Thrombocytopenia [Unknown]
  - Inflammation [Recovering/Resolving]
  - Erythema [Unknown]
  - Condition aggravated [Unknown]
  - Ulcer [Unknown]
  - Pseudopolyp [Unknown]
  - Illness [Unknown]
